FAERS Safety Report 8608714-4 (Version None)
Quarter: 2012Q3

REPORT INFORMATION
  Report Type: 
  Country: None (occurrence: None)
  Receive Date: 20120809
  Receipt Date: 20120809
  Transmission Date: 20120928
  Serious: No
  Sender: FDA-Public Use
  Company Number: None

PATIENT
  Age: 9 Year
  Sex: Male

DRUGS (1)
  1. LUPRON [Suspect]
     Indication: PRECOCIOUS PUBERTY
     Dosage: 11.25 ,G Q3M IM
     Route: 030
     Dates: start: 20120425

REACTIONS (2)
  - TONGUE DISCOLOURATION [None]
  - GLOSSODYNIA [None]
